FAERS Safety Report 16176547 (Version 3)
Quarter: 2019Q3

REPORT INFORMATION
  Report Type: Spontaneous
  Country: GB (occurrence: GB)
  Receive Date: 20190409
  Receipt Date: 20190827
  Transmission Date: 20191004
  Serious: Yes (Death, Hospitalization)
  Sender: FDA-Public Use
  Company Number: PHHY2018GB163370

PATIENT
  Age: 47 Year
  Sex: Female

DRUGS (57)
  1. LANSOPRAZOLE. [Concomitant]
     Active Substance: LANSOPRAZOLE
     Indication: PROPHYLAXIS
     Dosage: 30 MG, QD
     Route: 048
  2. FLUVACCIN [Concomitant]
     Active Substance: INFLUENZA VIRUS VACCINE
     Indication: ANTIVIRAL PROPHYLAXIS
     Route: 058
  3. INFLUENZA VACCINE [Concomitant]
     Active Substance: INFLUENZA VIRUS VACCINE
     Indication: INFLUENZA
     Dosage: UNK
     Route: 058
     Dates: start: 20171211, end: 20171211
  4. LEVOMEPROMAZINE [Concomitant]
     Active Substance: LEVOMEPROMAZINE
     Dosage: 18.75 MG, UNK
     Route: 058
     Dates: start: 20190515, end: 20190515
  5. LEVOMEPROMAZINE [Concomitant]
     Active Substance: LEVOMEPROMAZINE
     Dosage: 50 MG, UNK
     Route: 058
     Dates: start: 20190516
  6. MIDAZOLAM [Concomitant]
     Active Substance: MIDAZOLAM HYDROCHLORIDE
     Dosage: 10 MG, UNK
     Route: 058
     Dates: start: 20190514, end: 20190515
  7. MIDAZOLAM [Concomitant]
     Active Substance: MIDAZOLAM HYDROCHLORIDE
     Dosage: 7.5 MG, UNK
     Route: 058
     Dates: start: 20190515, end: 20190516
  8. HALOPERIDOL. [Concomitant]
     Active Substance: HALOPERIDOL
     Indication: PRODUCT USED FOR UNKNOWN INDICATION
     Dosage: 3 MG, QD
     Route: 058
     Dates: start: 20190514, end: 20190514
  9. LETROZOLE. [Suspect]
     Active Substance: LETROZOLE
     Indication: BREAST CANCER
     Dosage: 2.5 MG, QD
     Route: 048
     Dates: start: 201709
  10. DENOSUMAB [Concomitant]
     Active Substance: DENOSUMAB
     Indication: PRODUCT USED FOR UNKNOWN INDICATION
     Dosage: 120 MG, QMO
     Route: 058
     Dates: start: 20171007, end: 20181120
  11. SAGE. [Concomitant]
     Active Substance: SAGE
     Indication: PROPHYLAXIS
     Dosage: 1 DF, UNK (1 TABLET)
     Route: 048
  12. DIAMORPHINE [Concomitant]
     Active Substance: DIAMORPHINE
     Dosage: 40 MG, UNK
     Route: 058
     Dates: start: 20190515, end: 20190516
  13. MIDAZOLAM [Concomitant]
     Active Substance: MIDAZOLAM HYDROCHLORIDE
     Indication: BONE PAIN
     Dosage: 2.5 MG, UNK
     Route: 058
     Dates: start: 20190514, end: 20190514
  14. DEXAMETHASONE. [Concomitant]
     Active Substance: DEXAMETHASONE
     Indication: PRODUCT USED FOR UNKNOWN INDICATION
     Dosage: 2 MG, QD
     Route: 048
     Dates: start: 20190501, end: 20190501
  15. NYSTATIN. [Concomitant]
     Active Substance: NYSTATIN
     Indication: ORAL CANDIDIASIS
     Dosage: 4 ML, QD
     Route: 048
     Dates: start: 20190508, end: 20190512
  16. GLYCOPYRONIUM [Concomitant]
     Active Substance: GLYCOPYRRONIUM
     Dosage: 200 UG, UNK
     Route: 058
     Dates: start: 20190515, end: 20190516
  17. ZOMORPH [Concomitant]
     Active Substance: MORPHINE SULFATE
     Indication: MUSCULOSKELETAL CHEST PAIN
     Dosage: 200 MG, UNK
     Route: 048
     Dates: start: 20171001
  18. SALBUTAMOL [Concomitant]
     Active Substance: ALBUTEROL
     Indication: PRODUCT USED FOR UNKNOWN INDICATION
     Dosage: 100 MG, UNK
     Route: 055
  19. GABAPENTIN. [Concomitant]
     Active Substance: GABAPENTIN
     Indication: MUSCULOSKELETAL CHEST PAIN
     Dosage: 900 MG, QD (300MG MORNING AND 600MG EVENING)
     Route: 048
  20. CALCICHEW D3 FORTE [Concomitant]
     Active Substance: CALCIUM\CHOLECALCIFEROL
     Indication: PROPHYLAXIS
     Dosage: 1 DF, QD (DOSE: 1 TABLET)
     Route: 048
     Dates: start: 20171007
  21. LAXIDO [Concomitant]
     Active Substance: POLYETHYLENE GLYCOL 3350\POTASSIUM CHLORIDE\SODIUM BICARBONATE\SODIUM CHLORIDE
     Indication: PRODUCT USED FOR UNKNOWN INDICATION
     Dosage: 1 DF, QD(1 SACHET )
     Route: 048
  22. ZOMORPH [Concomitant]
     Active Substance: MORPHINE SULFATE
     Dosage: 280 MG, QD
     Route: 048
     Dates: start: 20171002
  23. GABAPENTIN. [Concomitant]
     Active Substance: GABAPENTIN
     Dosage: 1800 MG, UNK
     Route: 048
     Dates: start: 20190324, end: 20190513
  24. ORAMORPH [Concomitant]
     Active Substance: MORPHINE SULFATE
     Indication: BONE PAIN
     Dosage: 80 MG, UNK
     Route: 048
     Dates: start: 20190506, end: 20190513
  25. DIAMORPHINE [Concomitant]
     Active Substance: DIAMORPHINE
     Indication: BONE PAIN
     Dosage: 30 MG, UNK
     Route: 058
     Dates: start: 20190514, end: 20190515
  26. DIFFLAM [Concomitant]
     Active Substance: BENZYDAMINE HYDROCHLORIDE
     Indication: PRODUCT USED FOR UNKNOWN INDICATION
     Dosage: 3 DF, QD
     Route: 061
     Dates: start: 20190513, end: 20190513
  27. OTHER AGENTS FOR LOCAL ORAL TREATMENT [Concomitant]
     Indication: PRODUCT USED FOR UNKNOWN INDICATION
     Dosage: 4 DF, QD
     Route: 048
     Dates: start: 20190516, end: 20190516
  28. TRASTUZUMAB. [Suspect]
     Active Substance: TRASTUZUMAB
     Indication: BREAST CANCER
     Dosage: 600 MG, UNK
     Route: 058
     Dates: start: 20170918, end: 20181205
  29. CITALOPRAM [Concomitant]
     Active Substance: CITALOPRAM HYDROBROMIDE
     Indication: PRODUCT USED FOR UNKNOWN INDICATION
     Dosage: 20 MG, QD
     Route: 048
  30. DIAMORPHINE [Concomitant]
     Active Substance: DIAMORPHINE
     Dosage: 180 MG, UNK
     Route: 058
     Dates: start: 20190514, end: 20190515
  31. DIAMORPHINE [Concomitant]
     Active Substance: DIAMORPHINE
     Dosage: 350 MG, UNK
     Route: 058
     Dates: start: 20190516, end: 20190517
  32. DIAMORPHINE [Concomitant]
     Active Substance: DIAMORPHINE
     Dosage: 1.25 MG, UNK
     Route: 042
     Dates: start: 20190324, end: 20190324
  33. LEVOMEPROMAZINE [Concomitant]
     Active Substance: LEVOMEPROMAZINE
     Indication: RESTLESSNESS
     Dosage: 25 MG, UNK
     Route: 058
     Dates: start: 20190515, end: 20190516
  34. MIDAZOLAM [Concomitant]
     Active Substance: MIDAZOLAM HYDROCHLORIDE
     Dosage: 5 MG, UNK
     Route: 058
     Dates: start: 20190515, end: 20190515
  35. DEXAMETHASONE. [Concomitant]
     Active Substance: DEXAMETHASONE
     Dosage: 3.3 MG, QD
     Route: 048
     Dates: start: 20190514, end: 20190515
  36. LORAZEPAM. [Concomitant]
     Active Substance: LORAZEPAM
     Indication: PRODUCT USED FOR UNKNOWN INDICATION
     Dosage: 4 MG, QD
     Route: 048
     Dates: start: 20190514, end: 20190514
  37. SANDO K [Concomitant]
     Indication: HYPOKALAEMIA
     Dosage: 4 DF, QD
     Route: 048
     Dates: start: 20190513, end: 20190513
  38. TRASTUZUMAB EMTANSINE [Suspect]
     Active Substance: ADO-TRASTUZUMAB EMTANSINE
     Indication: BREAST CANCER
     Dosage: 350 MG, Q3W
     Route: 042
     Dates: start: 20190115
  39. IBUPROFEN. [Concomitant]
     Active Substance: IBUPROFEN
     Indication: PRODUCT USED FOR UNKNOWN INDICATION
     Dosage: 1200 MG, QD
     Route: 048
  40. PARACETAMOL [Concomitant]
     Active Substance: ACETAMINOPHEN
     Indication: PRODUCT USED FOR UNKNOWN INDICATION
     Dosage: 4 G, QD
     Route: 048
  41. DIAMORPHINE [Concomitant]
     Active Substance: DIAMORPHINE
     Dosage: 270 MG, UNK
     Route: 058
     Dates: start: 20190515, end: 20190516
  42. GLYCOPYRONIUM [Concomitant]
     Active Substance: GLYCOPYRRONIUM
     Indication: PRODUCT USED FOR UNKNOWN INDICATION
     Dosage: 1.2 MG, UNK
     Route: 058
     Dates: start: 20190515, end: 20190517
  43. PARACETAMOL [Concomitant]
     Active Substance: ACETAMINOPHEN
     Indication: BONE PAIN
     Dosage: 4 G, QD
     Route: 042
     Dates: start: 20190324, end: 20190515
  44. NITROFURANTOIN. [Concomitant]
     Active Substance: NITROFURANTOIN
     Indication: URINARY TRACT INFECTION
     Dosage: 150 MG, QD
     Route: 048
     Dates: start: 20190124, end: 20190127
  45. AMOXICILLIN. [Concomitant]
     Active Substance: AMOXICILLIN
     Indication: SINUSITIS
     Dosage: 2000 MG, QD
     Route: 048
     Dates: start: 20180911, end: 20180918
  46. ORAMORPH [Concomitant]
     Active Substance: MORPHINE SULFATE
     Dosage: 20 MG, UNK
     Route: 048
     Dates: end: 20171002
  47. MIDAZOLAM [Concomitant]
     Active Substance: MIDAZOLAM HYDROCHLORIDE
     Dosage: 30 MG, UNK
     Route: 058
     Dates: start: 20190515, end: 20190516
  48. MIDAZOLAM [Concomitant]
     Active Substance: MIDAZOLAM HYDROCHLORIDE
     Dosage: 50 MG, UNK
     Route: 058
     Dates: start: 20190516
  49. DEXAMETHASONE. [Concomitant]
     Active Substance: DEXAMETHASONE
     Dosage: 5 MG, QD
     Route: 048
     Dates: start: 20190510, end: 20190513
  50. INHIXA [Concomitant]
     Active Substance: ENOXAPARIN SODIUM
     Indication: PRODUCT USED FOR UNKNOWN INDICATION
     Dosage: 40 MG, QD
     Route: 058
     Dates: start: 20190501, end: 20190513
  51. HYALURONIDASE (HUMAN RECOMBINANT) [Suspect]
     Active Substance: HYALURONIDASE (HUMAN RECOMBINANT)
     Indication: BREAST CANCER
     Route: 058
     Dates: start: 20170918, end: 20181205
  52. ZOMORPH [Concomitant]
     Active Substance: MORPHINE SULFATE
     Dosage: 480 MG, QD
     Route: 048
     Dates: start: 20190116
  53. GABAPENTIN. [Concomitant]
     Active Substance: GABAPENTIN
     Indication: BONE PAIN
     Dosage: 600 MG, QD
     Route: 048
     Dates: end: 20181220
  54. FLUCLOXACILLIN [Concomitant]
     Active Substance: FLUCLOXACILLIN
     Indication: SKIN INFECTION
     Dosage: 2000 MG, QD
     Route: 048
     Dates: start: 20180803, end: 20180810
  55. DIAMORPHINE [Concomitant]
     Active Substance: DIAMORPHINE
     Dosage: 2.5 MG, UNK
     Route: 058
     Dates: start: 20190514, end: 20190514
  56. SENNA [Concomitant]
     Active Substance: SENNA LEAF\SENNOSIDES\SENNOSIDES A AND B
     Indication: PRODUCT USED FOR UNKNOWN INDICATION
     Dosage: 2 DF, QD
     Route: 048
  57. DEXAMETHASONE. [Concomitant]
     Active Substance: DEXAMETHASONE
     Dosage: 6 MG, QD
     Route: 048
     Dates: start: 20190502, end: 20190509

REACTIONS (7)
  - Sinusitis [Recovered/Resolved]
  - Musculoskeletal pain [Recovered/Resolved]
  - Skin infection [Recovered/Resolved]
  - Neck pain [Recovered/Resolved]
  - Hypoaesthesia [Not Recovered/Not Resolved]
  - Pain in extremity [Recovered/Resolved]
  - Pneumonia [Fatal]

NARRATIVE: CASE EVENT DATE: 20180305
